FAERS Safety Report 9275759 (Version 1)
Quarter: 2013Q2

REPORT INFORMATION
  Report Type: Spontaneous
  Country: AU (occurrence: AU)
  Receive Date: 20130507
  Receipt Date: 20130507
  Transmission Date: 20140414
  Serious: Yes (Other)
  Sender: FDA-Public Use
  Company Number: AU-PFIZER INC-2013137086

PATIENT
  Sex: Female

DRUGS (1)
  1. LONITEN [Suspect]

REACTIONS (1)
  - Pulmonary hypertension [Unknown]
